FAERS Safety Report 10142097 (Version 2)
Quarter: 2014Q2

REPORT INFORMATION
  Report Type: Spontaneous
  Country: IE (occurrence: IE)
  Receive Date: 20140429
  Receipt Date: 20140506
  Transmission Date: 20141212
  Serious: Yes (Hospitalization)
  Sender: FDA-Public Use
  Company Number: PHFR2014IE003081

PATIENT
  Age: 34 Year
  Sex: Male

DRUGS (3)
  1. CLOZARIL [Suspect]
     Indication: SCHIZOPHRENIA
     Dosage: UNK
     Route: 048
     Dates: start: 20090428
  2. CLOZARIL [Suspect]
     Dosage: TOOK 2 WEEKS WORTH OF CLOZARIL UNK
     Route: 048
  3. CLOZARIL [Suspect]
     Dosage: UNK
     Route: 048
     Dates: start: 20140501

REACTIONS (5)
  - Blood creatine phosphokinase increased [Unknown]
  - Overdose [Recovered/Resolved]
  - Platelet count increased [Unknown]
  - White blood cell count increased [Unknown]
  - Neutrophil count increased [Unknown]
